FAERS Safety Report 4812107-5 (Version None)
Quarter: 2005Q4

REPORT INFORMATION
  Report Type: 
  Country: None (occurrence: None)
  Receive Date: 20051028
  Receipt Date: 20040122
  Transmission Date: 20060501
  Serious: No
  Sender: FDA-Public Use
  Company Number: US-GLAXOSMITHKLINE-A0494711A

PATIENT
  Age: 80 Year
  Sex: Female
  Weight: 70.5 kg

DRUGS (10)
  1. ADVAIR DISKUS 100/50 [Suspect]
     Indication: DRUG USE FOR UNKNOWN INDICATION
     Dosage: 1PUFF TWICE PER DAY
     Route: 055
     Dates: start: 20030714, end: 20040330
  2. THEO-DUR [Concomitant]
  3. HYDROCHLOROTHIAZIDE [Concomitant]
  4. RANITIDINE [Concomitant]
  5. ALBUTEROL [Concomitant]
  6. NORVASC [Concomitant]
  7. KLOR-CON [Concomitant]
  8. SEREVENT [Concomitant]
  9. ATROVENT [Concomitant]
     Route: 055
  10. ALBUTEROL [Concomitant]
     Route: 055

REACTIONS (5)
  - ORAL DISCOMFORT [None]
  - ORAL PAIN [None]
  - PHARYNGOLARYNGEAL PAIN [None]
  - STOMATITIS [None]
  - THROAT IRRITATION [None]
